FAERS Safety Report 15377621 (Version 1)
Quarter: 2018Q3

REPORT INFORMATION
  Report Type: Spontaneous
  Country: IN (occurrence: IN)
  Receive Date: 20180913
  Receipt Date: 20180913
  Transmission Date: 20181010
  Serious: Yes (Other)
  Sender: FDA-Public Use
  Company Number: IN-ABBVIE-18P-078-2481601-00

PATIENT
  Age: 33 Year
  Sex: Female

DRUGS (4)
  1. THYRONORM [Suspect]
     Active Substance: LEVOTHYROXINE
     Indication: HYPOTHYROIDISM
     Route: 048
  2. THYRONORM [Suspect]
     Active Substance: LEVOTHYROXINE
     Route: 048
  3. THYRONORM [Suspect]
     Active Substance: LEVOTHYROXINE
     Route: 048
  4. THYRONORM [Suspect]
     Active Substance: LEVOTHYROXINE
     Route: 048

REACTIONS (10)
  - Intentional product use issue [Unknown]
  - Abortion spontaneous [Unknown]
  - Depression [Not Recovered/Not Resolved]
  - Somnolence [Not Recovered/Not Resolved]
  - Feeling abnormal [Not Recovered/Not Resolved]
  - Weight increased [Not Recovered/Not Resolved]
  - Depression [Unknown]
  - Drug dose omission [Unknown]
  - Anger [Not Recovered/Not Resolved]
  - Exposure during pregnancy [Unknown]

NARRATIVE: CASE EVENT DATE: 2017
